FAERS Safety Report 23160400 (Version 1)
Quarter: 2023Q4

REPORT INFORMATION
  Report Type: Spontaneous
  Country: None (occurrence: US)
  Receive Date: 20231108
  Receipt Date: 20231108
  Transmission Date: 20240110
  Serious: No
  Sender: FDA-Public Use
  Company Number: US-Breckenridge Pharmaceutical, Inc.-2148008

PATIENT
  Sex: Female

DRUGS (1)
  1. ESTRADIOL AND NORETHINDRONE ACETATE [Suspect]
     Active Substance: ESTRADIOL\NORETHINDRONE ACETATE
     Route: 048

REACTIONS (4)
  - Middle insomnia [Unknown]
  - Hot flush [Unknown]
  - Suspected product quality issue [Unknown]
  - Therapeutic product effect incomplete [Unknown]
